FAERS Safety Report 9612912 (Version 1)
Quarter: 2013Q4

REPORT INFORMATION
  Report Type: Spontaneous
  Country: FR (occurrence: FR)
  Receive Date: 20131010
  Receipt Date: 20131010
  Transmission Date: 20140711
  Serious: Yes (Other)
  Sender: FDA-Public Use
  Company Number: FR-B.I. PHARMACEUTICALS,INC./RIDGEFIELD-2013-FF-02456FF

PATIENT
  Age: 85 Year
  Sex: Female

DRUGS (8)
  1. PRADAXA [Suspect]
     Indication: ARRHYTHMIA
     Dosage: 220 MG
     Route: 048
     Dates: start: 201306, end: 20130918
  2. AUGMENTIN [Concomitant]
  3. NOVORAPID [Concomitant]
  4. LANTUS [Concomitant]
  5. CONTRAMAL [Concomitant]
  6. DOLIPRANE [Concomitant]
  7. NOVONORM [Concomitant]
  8. DIGOXINE [Concomitant]

REACTIONS (2)
  - Deep vein thrombosis [Not Recovered/Not Resolved]
  - Thrombophlebitis superficial [Not Recovered/Not Resolved]
